FAERS Safety Report 24742135 (Version 1)
Quarter: 2024Q4

REPORT INFORMATION
  Report Type: Spontaneous
  Country: US (occurrence: US)
  Receive Date: 20241217
  Receipt Date: 20241217
  Transmission Date: 20250114
  Serious: No
  Sender: ALEXION PHARMACEUTICALS
  Company Number: US-AstraZeneca-CH-00740764AP

PATIENT
  Age: 68 Year

DRUGS (1)
  1. BYDUREON BCISE [Suspect]
     Active Substance: EXENATIDE
     Dosage: 2 MILLIGRAM, QW

REACTIONS (4)
  - Injection site haemorrhage [Unknown]
  - Medication error [Unknown]
  - Device use issue [Unknown]
  - Incorrect dose administered [Unknown]
